FAERS Safety Report 19229132 (Version 1)
Quarter: 2021Q2

REPORT INFORMATION
  Report Type: Other
  Country: US (occurrence: US)
  Receive Date: 20210507
  Receipt Date: 20210507
  Transmission Date: 20210717
  Serious: Yes (Hospitalization)
  Sender: FDA-Public Use
  Company Number: US-ROCHE-2822953

PATIENT
  Sex: Male

DRUGS (1)
  1. OCREVUS [Suspect]
     Active Substance: OCRELIZUMAB
     Indication: RELAPSING-REMITTING MULTIPLE SCLEROSIS
     Dosage: DOT:12/AUG/2020
     Route: 065
     Dates: start: 20200205

REACTIONS (3)
  - COVID-19 [Unknown]
  - Pulmonary embolism [Unknown]
  - Epistaxis [Unknown]
